FAERS Safety Report 9843904 (Version 3)
Quarter: 2014Q1

REPORT INFORMATION
  Report Type: Report from Study
  Country: CA (occurrence: CA)
  Receive Date: 20140126
  Receipt Date: 20140219
  Transmission Date: 20141002
  Serious: Yes (Other)
  Sender: FDA-Public Use
  Company Number: PHHY2013CA060807

PATIENT
  Sex: Male

DRUGS (2)
  1. SANDOSTATIN LAR [Suspect]
     Indication: NEUROENDOCRINE TUMOUR
     Dosage: 20 MG, ONE TIME DOSE
     Route: 030
     Dates: start: 20130607
  2. SANDOSTATIN LAR [Suspect]
     Dosage: 30 MG, QMO
     Route: 030

REACTIONS (5)
  - Rib fracture [Unknown]
  - Fall [Unknown]
  - Blood pressure increased [Unknown]
  - Head injury [Unknown]
  - Laceration [Unknown]
